FAERS Safety Report 6825206-3 (Version None)
Quarter: 2010Q3

REPORT INFORMATION
  Report Type: 
  Country: None (occurrence: None)
  Receive Date: 20100708
  Receipt Date: 20070105
  Transmission Date: 20110219
  Serious: No
  Sender: FDA-Public Use
  Company Number: US-PFIZER INC-2007002950

PATIENT
  Sex: Female
  Weight: 72.12 kg

DRUGS (3)
  1. CHANTIX [Suspect]
     Indication: SMOKING CESSATION THERAPY
     Dates: start: 20061201
  2. CALCIUM CARBONATE [Concomitant]
  3. ACTONEL [Concomitant]

REACTIONS (1)
  - ABNORMAL DREAMS [None]
